FAERS Safety Report 20059500 (Version 1)
Quarter: 2021Q4

REPORT INFORMATION
  Report Type: Spontaneous
  Country: US (occurrence: US)
  Receive Date: 20211111
  Receipt Date: 20211111
  Transmission Date: 20220303
  Serious: Yes (Other)
  Sender: FDA-Public Use
  Company Number: US-TAKEDA-2021TUS069312

PATIENT
  Age: 50 Year
  Sex: Male

DRUGS (4)
  1. HUMAN IMMUNOGLOBULIN G [Suspect]
     Active Substance: HUMAN IMMUNOGLOBULIN G
     Indication: Product used for unknown indication
     Dosage: UNK
     Route: 042
  2. BRENTUXIMAB [Concomitant]
     Active Substance: BRENTUXIMAB
  3. RITUXIMAB [Concomitant]
     Active Substance: RITUXIMAB
  4. TACROLIMUS [Concomitant]
     Active Substance: TACROLIMUS

REACTIONS (2)
  - Thrombotic microangiopathy [Unknown]
  - Renal cortical necrosis [Not Recovered/Not Resolved]
